FAERS Safety Report 19619538 (Version 1)
Quarter: 2021Q3

REPORT INFORMATION
  Report Type: Spontaneous
  Country: US (occurrence: US)
  Receive Date: 20210728
  Receipt Date: 20210728
  Transmission Date: 20211014
  Serious: Yes (Hospitalization)
  Sender: FDA-Public Use
  Company Number: US-ALKEM LABORATORIES LIMITED-US-ALKEM-2020-03186

PATIENT
  Age: 78 Year
  Sex: Female

DRUGS (5)
  1. DRONABINOL. [Suspect]
     Active Substance: DRONABINOL
     Indication: INCREASED APPETITE
     Dosage: UNK
     Route: 065
     Dates: start: 202005, end: 2020
  2. LENVIMA [Suspect]
     Active Substance: LENVATINIB
     Dosage: 4 MILLIGRAM, OD
     Route: 048
     Dates: start: 20200517
  3. LENVIMA [Suspect]
     Active Substance: LENVATINIB
     Indication: THYROID CANCER
     Dosage: 12 MILLIGRAM, OD
     Route: 048
     Dates: end: 201909
  4. LENVIMA [Suspect]
     Active Substance: LENVATINIB
     Dosage: 8 MILLIGRAM, OD
     Route: 048
     Dates: start: 20191007, end: 20191124
  5. LENVIMA [Suspect]
     Active Substance: LENVATINIB
     Dosage: 4 MILLIGRAM, OD
     Route: 048
     Dates: start: 20191125, end: 20200514

REACTIONS (10)
  - Vitamin B6 deficiency [Unknown]
  - Vitamin B12 deficiency [Unknown]
  - Vomiting [Unknown]
  - Oropharyngeal pain [Unknown]
  - Balance disorder [Unknown]
  - Oral pain [Unknown]
  - Dizziness [Not Recovered/Not Resolved]
  - Dehydration [Not Recovered/Not Resolved]
  - Fatigue [Not Recovered/Not Resolved]
  - Decreased appetite [Unknown]

NARRATIVE: CASE EVENT DATE: 201909
